FAERS Safety Report 9765023 (Version 2)
Quarter: 2014Q1

REPORT INFORMATION
  Report Type: Report from Study
  Country: IT (occurrence: IT)
  Receive Date: 20131217
  Receipt Date: 20140130
  Transmission Date: 20141002
  Serious: Yes (Hospitalization, Other)
  Sender: FDA-Public Use
  Company Number: IT-MPIJNJ-2013JNJ001257

PATIENT
  Sex: 0

DRUGS (29)
  1. VELCADE [Suspect]
     Indication: PLASMA CELL MYELOMA
     Dosage: 1.3 MG/M2, UNK
     Route: 058
     Dates: start: 20130906, end: 20131128
  2. CYCLOPHOSPHAMIDE [Suspect]
     Indication: PLASMA CELL MYELOMA
     Dosage: 500 MG/M2, UNK
     Route: 042
     Dates: start: 20130906, end: 20131128
  3. DEXAMETHASONE [Suspect]
     Indication: PLASMA CELL MYELOMA
     Dosage: 40 MG, UNK
     Route: 048
     Dates: start: 20130906, end: 20131129
  4. ERACID [Concomitant]
  5. LYRICA [Concomitant]
  6. MORPHINE [Concomitant]
  7. BACTRIM BALSAMICO F [Concomitant]
  8. VALACICLOVIR [Concomitant]
  9. FLUCONAZOLE [Concomitant]
  10. ENOXAPARIN [Concomitant]
  11. ALLOPURINOL [Concomitant]
  12. FUROSEMIDE [Concomitant]
  13. LEVOFLOXACIN [Concomitant]
  14. PORTOLAC [Concomitant]
  15. MIRTAZAPIN [Concomitant]
  16. LEXOTAN [Concomitant]
  17. AROVIT                             /00056002/ [Concomitant]
  18. RIOPAN                             /00141701/ [Concomitant]
  19. KEPPRA [Concomitant]
  20. RIVOTRIL [Concomitant]
  21. BECLOMETASONE [Concomitant]
  22. AZITHROMYCIN [Concomitant]
  23. SALBUTAMOL [Concomitant]
  24. IPRATROPIUM BROMIDE [Concomitant]
  25. ROCEPHIN [Concomitant]
  26. PIPERACILLINE/TAZOBACTAM [Concomitant]
  27. VANCOMYCIN [Concomitant]
  28. MEROPENEM [Concomitant]
  29. TEICOPLANIN [Concomitant]

REACTIONS (3)
  - Cardiac failure [Recovered/Resolved]
  - Pneumonia [Recovered/Resolved]
  - Convulsion [Recovering/Resolving]
